FAERS Safety Report 7525405-1 (Version None)
Quarter: 2011Q2

REPORT INFORMATION
  Report Type: 
  Country: None (occurrence: None)
  Receive Date: 20110606
  Receipt Date: 20110526
  Transmission Date: 20111010
  Serious: Yes (Hospitalization)
  Sender: FDA-Public Use
  Company Number: FR-ASTRAZENECA-2011SE00708

PATIENT
  Age: 24039 Day
  Sex: Male

DRUGS (8)
  1. SPASFON [Suspect]
     Route: 048
  2. VALACYCLOVIR [Suspect]
     Route: 048
     Dates: start: 20101029
  3. ALUMINUM HYDROXIDE AND MAGNESIUM TRISILICATE [Concomitant]
  4. NEXIUM [Suspect]
     Route: 048
  5. PROGRAF [Suspect]
     Route: 048
  6. PREDNISONE [Suspect]
  7. CELLCEPT [Suspect]
     Route: 048
  8. VALACYCLOVIR HYDROCHLORIDE [Concomitant]

REACTIONS (1)
  - LUNG DISORDER [None]
